FAERS Safety Report 18762497 (Version 2)
Quarter: 2021Q1

REPORT INFORMATION
  Report Type: Spontaneous
  Country: US (occurrence: US)
  Receive Date: 20210120
  Receipt Date: 20210128
  Transmission Date: 20210419
  Serious: No
  Sender: FDA-Public Use
  Company Number: US-PFIZER INC-2021030311

PATIENT
  Age: 74 Year

DRUGS (1)
  1. FLECTOR [Suspect]
     Active Substance: DICLOFENAC EPOLAMINE
     Dosage: UNK
     Route: 061

REACTIONS (4)
  - Tooth disorder [Unknown]
  - Intentional product misuse [Unknown]
  - Sinus disorder [Unknown]
  - Back pain [Unknown]
